FAERS Safety Report 5213239-2 (Version None)
Quarter: 2007Q1

REPORT INFORMATION
  Report Type: 
  Country: None (occurrence: None)
  Receive Date: 20070116
  Receipt Date: 20070104
  Transmission Date: 20070707
  Serious: Yes (Other)
  Sender: FDA-Public Use
  Company Number: S06-USA-04902-01

PATIENT
  Age: 62 Year
  Sex: Female

DRUGS (5)
  1. THYROID TAB [Suspect]
     Indication: HYPOTHYROIDISM
     Dosage: 150 MG PO
     Route: 048
     Dates: end: 20061119
  2. THYROID TAB [Suspect]
     Indication: HYPOTHYROIDISM
     Dosage: 120 MG PO
     Route: 048
     Dates: end: 20061119
  3. THYROID TAB [Suspect]
     Indication: HYPOTHYROIDISM
     Dosage: 150 MG QOD PO
     Route: 048
     Dates: start: 20061120
  4. THYROID TAB [Suspect]
     Indication: HYPOTHYROIDISM
     Dosage: 120 MG QOD PO
     Route: 048
     Dates: start: 20061120
  5. THYROID TAB [Suspect]
     Indication: HYPOTHYROIDISM
     Dates: start: 20000101

REACTIONS (14)
  - ANTINUCLEAR ANTIBODY INCREASED [None]
  - ARTHRITIS [None]
  - CARDIAC MURMUR [None]
  - CONDITION AGGRAVATED [None]
  - DIPLOPIA [None]
  - DYSPNOEA [None]
  - FEELING ABNORMAL [None]
  - HEADACHE [None]
  - PALPITATIONS [None]
  - PARAESTHESIA [None]
  - PHARMACEUTICAL PRODUCT COMPLAINT [None]
  - RED BLOOD CELL SEDIMENTATION RATE INCREASED [None]
  - TRI-IODOTHYRONINE INCREASED [None]
  - WHITE BLOOD CELL COUNT DECREASED [None]
